FAERS Safety Report 7282939-5 (Version None)
Quarter: 2011Q1

REPORT INFORMATION
  Report Type: 
  Country: None (occurrence: None)
  Receive Date: 20110209
  Receipt Date: 20110131
  Transmission Date: 20110831
  Serious: Yes (Life-Threatening, Hospitalization)
  Sender: FDA-Public Use
  Company Number: CH-JNJFOC-20101101116

PATIENT
  Age: 69 Year
  Sex: Male
  Weight: 93 kg

DRUGS (14)
  1. LISINOPRIL [Suspect]
     Indication: ESSENTIAL HYPERTENSION
     Route: 048
  2. CITALOPRAM [Suspect]
     Route: 048
  3. HALDOL [Suspect]
     Indication: PERSONALITY DISORDER
     Route: 030
  4. CITALOPRAM [Suspect]
     Indication: ILL-DEFINED DISORDER
     Route: 048
  5. PLENDIL [Concomitant]
     Indication: ESSENTIAL HYPERTENSION
     Route: 048
  6. RISPERDAL [Suspect]
     Indication: PERSONALITY DISORDER
     Route: 048
  7. RISPERDAL [Suspect]
     Route: 048
  8. SEROQUEL XR [Suspect]
     Indication: PERSONALITY DISORDER
     Route: 048
  9. DISTRANEURINE [Concomitant]
     Route: 048
  10. NEOTIGASON [Concomitant]
     Indication: ILL-DEFINED DISORDER
     Route: 048
  11. TORASEMID [Concomitant]
     Indication: ESSENTIAL HYPERTENSION
     Route: 048
  12. HALDOL [Suspect]
     Route: 030
  13. TRAMAL [Suspect]
     Indication: PAIN
     Route: 048
  14. DAFALGAN [Concomitant]
     Indication: ILL-DEFINED DISORDER
     Route: 048

REACTIONS (13)
  - EPILEPSY [None]
  - AGITATION [None]
  - PARAESTHESIA [None]
  - ABDOMINAL PAIN [None]
  - HEMISENSORY NEGLECT [None]
  - ALTERED STATE OF CONSCIOUSNESS [None]
  - STUPOR [None]
  - VOMITING [None]
  - TRANSIENT ISCHAEMIC ATTACK [None]
  - DYSARTHRIA [None]
  - MOTOR DYSFUNCTION [None]
  - PARALYSIS [None]
  - EYE MOVEMENT DISORDER [None]
